FAERS Safety Report 4492074-7 (Version None)
Quarter: 2004Q4

REPORT INFORMATION
  Report Type: 
  Country: None (occurrence: None)
  Receive Date: 20041029
  Receipt Date: 20041026
  Transmission Date: 20050328
  Serious: Yes (Other)
  Sender: FDA-Public Use
  Company Number: THQ2004A00878

PATIENT
  Age: 35 Year
  Sex: Female

DRUGS (3)
  1. LUPRON DEPOT-4 [Suspect]
     Indication: ENDOMETRIOSIS
     Dosage: 3.75 MG (3.75 MG, 1 IN 1 M), INTRAMUSCULAR
     Route: 030
     Dates: start: 20030821, end: 20031121
  2. COENZYME Q10 [Suspect]
     Indication: HEPATIC ENZYME INCREASED
     Dosage: 20 MG (20 MG, 1 IN 48 HR), PER ORAL
     Route: 048
     Dates: start: 20040308, end: 20040401
  3. MENOPACE (MENOPACE) [Concomitant]

REACTIONS (11)
  - ABORTION MISSED [None]
  - ABORTION SPONTANEOUS [None]
  - AMENORRHOEA [None]
  - BREAST PAIN [None]
  - DRUG EXPOSURE DURING PREGNANCY [None]
  - EPISTAXIS [None]
  - HEPATIC STEATOSIS [None]
  - HEPATOMEGALY [None]
  - LIVER DISORDER [None]
  - LIVER SCAN ABNORMAL [None]
  - PREGNANCY [None]
